FAERS Safety Report 4893731-0 (Version None)
Quarter: 2006Q1

REPORT INFORMATION
  Report Type: 
  Country: None (occurrence: None)
  Receive Date: 20060127
  Receipt Date: 20060117
  Transmission Date: 20060701
  Serious: Yes (Other)
  Sender: FDA-Public Use
  Company Number: DK-GLAXOSMITHKLINE-B0407660A

PATIENT
  Age: 49 Year
  Sex: Male

DRUGS (1)
  1. VENTOLIN [Suspect]
     Route: 055

REACTIONS (6)
  - ANXIETY [None]
  - ASTHMA [None]
  - FEELING JITTERY [None]
  - HYPERACUSIS [None]
  - HYPERSENSITIVITY [None]
  - STRESS [None]
